FAERS Safety Report 21740226 (Version 1)
Quarter: 2022Q4

REPORT INFORMATION
  Report Type: Spontaneous
  Country: JP (occurrence: JP)
  Receive Date: 20221216
  Receipt Date: 20221216
  Transmission Date: 20230113
  Serious: Yes (Life-Threatening, Hospitalization)
  Sender: FDA-Public Use
  Company Number: JP-MSD-1908JPN002114J

PATIENT
  Age: 68 Year
  Sex: Male
  Weight: 78 kg

DRUGS (7)
  1. BRIDION [Suspect]
     Active Substance: SUGAMMADEX
     Indication: Neuromuscular blockade reversal
     Dosage: 200 MILLIGRAM, QD
     Route: 042
     Dates: start: 20190731, end: 20190731
  2. BRIDION [Suspect]
     Active Substance: SUGAMMADEX
     Indication: Recurrence of neuromuscular blockade
     Dosage: 200 MILLIGRAM, QD
     Route: 042
     Dates: start: 20190801, end: 20190801
  3. ROCURONIUM BROMIDE [Suspect]
     Active Substance: ROCURONIUM BROMIDE
     Indication: Neuromuscular blocking therapy
     Dosage: 383 MILLIGRAM, QD
     Route: 042
     Dates: start: 20190731, end: 20190731
  4. PROPOFOL [Concomitant]
     Active Substance: PROPOFOL
     Indication: Anaesthesia procedure
     Dosage: 70 MILLIGRAM, QD
     Route: 051
     Dates: start: 20190731, end: 20190731
  5. FENTANYL CITRATE [Concomitant]
     Active Substance: FENTANYL CITRATE
     Indication: Anaesthesia procedure
     Dosage: 10 MILLIGRAM, PERSISTENCE
     Route: 042
     Dates: start: 20190731, end: 20190731
  6. SEVOFLURANE [Concomitant]
     Active Substance: SEVOFLURANE
     Indication: Sedation
     Dosage: 161 MILLILITER, QD
     Dates: start: 20190731, end: 20190731
  7. REMIFENTANIL HYDROCHLORIDE [Concomitant]
     Active Substance: REMIFENTANIL HYDROCHLORIDE
     Indication: Analgesic therapy
     Dosage: 10 MILLIGRAM, QD
     Route: 042
     Dates: start: 20190731, end: 20190731

REACTIONS (1)
  - Recurrence of neuromuscular blockade [Recovered/Resolved]

NARRATIVE: CASE EVENT DATE: 20190801
